FAERS Safety Report 4744628-8 (Version None)
Quarter: 2005Q3

REPORT INFORMATION
  Report Type: 
  Country: None (occurrence: None)
  Receive Date: 20050811
  Receipt Date: 20050511
  Transmission Date: 20060218
  Serious: Yes (Other)
  Sender: FDA-Public Use
  Company Number: K200500634

PATIENT
  Age: 77 Year
  Sex: Male

DRUGS (3)
  1. SEPTRA [Suspect]
     Dosage: BID, ORAL
     Route: 048
     Dates: start: 20050501, end: 20050503
  2. VANCOMYCIN [Concomitant]
  3. ZOSYN (TAZOBACTAM SODIUM, PIPERACILLIN SODIUM) [Concomitant]

REACTIONS (1)
  - RASH [None]
